FAERS Safety Report 7525100-9 (Version None)
Quarter: 2011Q2

REPORT INFORMATION
  Report Type: 
  Country: None (occurrence: None)
  Receive Date: 20110606
  Receipt Date: 20110602
  Transmission Date: 20111010
  Serious: Yes (Hospitalization)
  Sender: FDA-Public Use
  Company Number: US-AMGEN-USASP2011028343

PATIENT
  Age: 63 Year

DRUGS (5)
  1. ETOPOSIDE [Concomitant]
  2. CYTARABINE [Concomitant]
  3. PEGFILGRASTIM [Suspect]
     Indication: NEUTROPENIA
  4. RITUXAN [Suspect]
  5. CISPLATIN [Concomitant]

REACTIONS (2)
  - CEREBROVASCULAR ACCIDENT [None]
  - CEREBRAL INFARCTION [None]
